FAERS Safety Report 8133721-8 (Version None)
Quarter: 2012Q1

REPORT INFORMATION
  Report Type: 
  Country: None (occurrence: None)
  Receive Date: 20120213
  Receipt Date: 20120206
  Transmission Date: 20120608
  Serious: Yes (Other)
  Sender: FDA-Public Use
  Company Number: JP-VERTEX PHARMACEUTICALS INC.-AE-2012-001925

PATIENT
  Age: 66 Year
  Sex: Male

DRUGS (6)
  1. RIBAVIRIN [Concomitant]
     Indication: HEPATITIS C
     Route: 048
     Dates: start: 20120130
  2. CLARITIN [Concomitant]
     Route: 048
  3. PEGINTERFERON ALFA-2B [Concomitant]
     Indication: HEPATITIS C
     Route: 051
     Dates: start: 20120130
  4. NIZATIDINE [Concomitant]
     Route: 048
     Dates: start: 20120201
  5. CANDESARTAN CILEXETIL [Concomitant]
     Route: 048
  6. TELAVIC (TELAPREVIR) [Suspect]
     Indication: HEPATITIS C
     Route: 048
     Dates: start: 20120130

REACTIONS (5)
  - BLOOD URIC ACID INCREASED [None]
  - VOMITING [None]
  - RENAL DISORDER [None]
  - DECREASED APPETITE [None]
  - DEHYDRATION [None]
